FAERS Safety Report 4848973-7 (Version None)
Quarter: 2005Q4

REPORT INFORMATION
  Report Type: 
  Country: None (occurrence: None)
  Receive Date: 20051208
  Receipt Date: 20051114
  Transmission Date: 20060501
  Serious: Yes (Hospitalization, Other)
  Sender: FDA-Public Use
  Company Number: US-MERCK-0511USA02268

PATIENT
  Age: 70 Year
  Sex: Female
  Weight: 77 kg

DRUGS (1)
  1. VIOXX [Suspect]
     Indication: ARTHRITIS
     Route: 048
     Dates: start: 20030421, end: 20040201

REACTIONS (11)
  - BLINDNESS UNILATERAL [None]
  - CAROTID ARTERY DISEASE [None]
  - CATARACT [None]
  - CEREBROVASCULAR ACCIDENT [None]
  - CYSTITIS [None]
  - EMOTIONAL DISORDER [None]
  - FALL [None]
  - KIDNEY INFECTION [None]
  - MYOCARDIAL INFARCTION [None]
  - STRESS [None]
  - WRIST FRACTURE [None]
